FAERS Safety Report 6234918-4 (Version None)
Quarter: 2009Q2

REPORT INFORMATION
  Report Type: 
  Country: None (occurrence: None)
  Receive Date: 20090618
  Receipt Date: 20090616
  Transmission Date: 20091009
  Serious: Yes (Hospitalization)
  Sender: FDA-Public Use
  Company Number: A0790627A

PATIENT
  Age: 31 Year
  Sex: Female
  Weight: 74 kg

DRUGS (2)
  1. LAPATINIB [Suspect]
     Indication: BREAST CANCER
     Dosage: 1500MG PER DAY
     Route: 048
     Dates: start: 20090521
  2. PACLITAXEL [Suspect]
     Indication: BREAST CANCER
     Dosage: 80MGM2 WEEKLY
     Route: 042
     Dates: start: 20090521

REACTIONS (4)
  - FEBRILE NEUTROPENIA [None]
  - LEUKOPENIA [None]
  - NEUTROPENIA [None]
  - ORAL PAIN [None]
